FAERS Safety Report 7727416-X (Version None)
Quarter: 2011Q3

REPORT INFORMATION
  Report Type: 
  Country: None (occurrence: None)
  Receive Date: 20110902
  Receipt Date: 20110830
  Transmission Date: 20111222
  Serious: Yes (Other)
  Sender: FDA-Public Use
  Company Number: US-PFIZER INC-2011202088

PATIENT
  Age: 29 Year
  Sex: Male

DRUGS (9)
  1. AZATHIOPRINE SODIUM [Concomitant]
     Indication: CROHN'S DISEASE
     Dosage: 50 MG, 1X/DAY
  2. DILANTIN-125 [Suspect]
     Indication: CONVULSION
     Dosage: 12.5 ML, 2X/DAY
  3. HYDROMORPHONE HYDROCHLORIDE [Concomitant]
     Indication: PAIN
     Dosage: UNK
  4. ALENDRONATE SODIUM [Concomitant]
     Indication: OSTEOPOROSIS
     Dosage: 70 MG, WEEKLY
  5. PROMETHAZINE [Concomitant]
     Indication: NAUSEA
     Dosage: UNK
  6. BUPROPION HYDROCHLORIDE [Concomitant]
     Indication: DEPRESSION
     Dosage: 150 MG, 2X/DAY
  7. HUMIRA [Suspect]
     Indication: CROHN'S DISEASE
     Dosage: 40 MG, 1 IN 2 WK
     Dates: start: 20100701
  8. COCAINE [Suspect]
     Dosage: UNK
  9. LORAZEPAM [Concomitant]
     Indication: SLEEP TERROR
     Dosage: 1 MG, AS NEEDED

REACTIONS (8)
  - TREMOR [None]
  - CROHN'S DISEASE [None]
  - DERMAL CYST [None]
  - LOSS OF CONSCIOUSNESS [None]
  - TREATMENT NONCOMPLIANCE [None]
  - EPILEPSY [None]
  - AMNESIA [None]
  - DIARRHOEA [None]
